FAERS Safety Report 8354741-4 (Version None)
Quarter: 2012Q2

REPORT INFORMATION
  Report Type: 
  Country: None (occurrence: None)
  Receive Date: 20120511
  Receipt Date: 20120504
  Transmission Date: 20120825
  Serious: Yes (Hospitalization)
  Sender: FDA-Public Use
  Company Number: GB-GLAXOSMITHKLINE-B0773066A

PATIENT
  Age: 20 Year
  Sex: Female

DRUGS (4)
  1. AMOXICILLIN [Suspect]
     Indication: COUGH
     Dosage: 1500MG PER DAY
     Route: 065
     Dates: start: 20111226, end: 20111231
  2. SYMBICORT [Suspect]
     Indication: ASTHMA
     Route: 065
  3. PREDNISOLONE [Suspect]
     Indication: COUGH
     Dosage: 30MG PER DAY
     Route: 065
     Dates: start: 20111226, end: 20111226
  4. ALBUTEROL [Suspect]
     Indication: ASTHMA
     Route: 065

REACTIONS (4)
  - PNEUMONIA [None]
  - MATERNAL EXPOSURE DURING PREGNANCY [None]
  - EXPIRED DRUG ADMINISTERED [None]
  - MEDICATION ERROR [None]
